FAERS Safety Report 24687338 (Version 1)
Quarter: 2024Q4

REPORT INFORMATION
  Report Type: Spontaneous
  Country: GB (occurrence: GB)
  Receive Date: 20241202
  Receipt Date: 20241202
  Transmission Date: 20250115
  Serious: Yes (Death, Other)
  Sender: MYLAN
  Company Number: None

PATIENT
  Age: 90 Year
  Sex: Male

DRUGS (22)
  1. APIXABAN [Suspect]
     Active Substance: APIXABAN
     Indication: Product used for unknown indication
     Dosage: 5 MILLIGRAM, BID (5 MG TABLETS, ONE TO BE TAKEN TWICE A DAY)
     Route: 065
     Dates: start: 20240729
  2. DEXAMETHASONE [Concomitant]
     Active Substance: DEXAMETHASONE
     Dosage: 500 MICROGRAM, QD (500 MICROGRAM TABLETS ONE DAILY)
     Route: 065
     Dates: start: 20240729
  3. LEVOTHYROXINE SODIUM [Concomitant]
     Active Substance: LEVOTHYROXINE SODIUM
     Dosage: 1 DOSAGE FORM, AM (25 MICROGRAM TABLETS ONE TO BE TAKEN EACH MORNING BEFORE BREAKFAST)
     Route: 065
     Dates: start: 20240729
  4. SIMVASTATIN [Concomitant]
     Active Substance: SIMVASTATIN
     Dosage: 40 MILLIGRAM, PM (TAKE ONE AT NIGHT)
     Route: 065
     Dates: start: 20240729
  5. SENNA [Concomitant]
     Active Substance: SENNA LEAF\SENNOSIDES\SENNOSIDES A AND B
     Dosage: 15 MILLIGRAM, PM (7.5 MG TABLETS TWO TO BE TAKEN AT NIGHT)
     Route: 065
     Dates: start: 20240530
  6. HYDROXOCOBALAMIN [Concomitant]
     Active Substance: HYDROXOCOBALAMIN
     Dosage: UNK, Q3MONTHS (1 MG / 1 ML SOLUTION FOR INJECTION AMPOULES EVERY THREE MONTHS)
     Route: 030
     Dates: start: 20240422, end: 202404
  7. BISOPROLOL [Concomitant]
     Active Substance: BISOPROLOL
     Dosage: 1.25 MILLIGRAM, PM (ONE TO BE TAKEN AT NIGHT)
     Route: 065
     Dates: start: 20240729
  8. FLUCLOXACILLIN [Concomitant]
     Active Substance: FLUCLOXACILLIN
     Dosage: 500 MILLIGRAM, Q6H (500 MG CAPSULES ONE TO BE TAKEN FOUR TIMES A DAY)
     Route: 065
     Dates: start: 20240815
  9. POLYETHYLENE GLYCOLS [Concomitant]
     Active Substance: POLYETHYLENE GLYCOLS
     Dosage: 2 DOSAGE FORM, BID (ONE TO BE TAKEN DAILY 30 SACHET ALSO ISSUED ON TTO 12/7/24 AS 2 SACHETS BD)
     Route: 048
     Dates: start: 20240731
  10. TRIPTORELIN [Concomitant]
     Active Substance: TRIPTORELIN
     Dosage: 22.5 MILLIGRAM
     Route: 065
  11. COCODAMOL [Concomitant]
     Active Substance: ACETAMINOPHEN\CODEINE PHOSPHATE
     Dosage: UNK, QID (15 MG/500 MG TABLETSONE OR TWO TO BE TAKEN FOUR TIMES A DAY WHEN REQUIRED)
     Route: 065
     Dates: start: 20240530
  12. Decapeptyl [Concomitant]
     Dosage: 22.5 MILLIGRAM, EVERY 6 MONTHS
     Route: 065
     Dates: start: 20231227, end: 20240627
  13. NITROFURANTOIN [Concomitant]
     Active Substance: NITROFURANTOIN
     Dosage: 100 MILLIGRAM, BID (ONE TO BE TAKEN TWICE A DAY)
     Route: 065
     Dates: start: 20240716
  14. POLYETHYLENE GLYCOL 3350\POTASSIUM CHLORIDE\SODIUM BICARBONATE\SODIUM [Concomitant]
     Active Substance: POLYETHYLENE GLYCOL 3350\POTASSIUM CHLORIDE\SODIUM BICARBONATE\SODIUM CHLORIDE
     Dosage: UNK, QD (2-3 SACHETS AS PER DAY AS NEEDED)
     Route: 048
     Dates: start: 20240607
  15. MOMETASONE [Concomitant]
     Active Substance: MOMETASONE
     Dosage: 2 DOSAGE FORM, BID (50 MICROGRAMS / DOSE NASAL SPRAY TWO SPRAYS TO BE USED IN EACH NOSTRILTWICE A DA
     Route: 045
     Dates: start: 20240530
  16. HYDROCORTISONE ACETATE [Concomitant]
     Active Substance: HYDROCORTISONE ACETATE
     Dosage: UNK, (APPLY THINLY ONCE OR TWICE A DAY 30 GRAM-NOT USING)
     Route: 065
     Dates: start: 20240524
  17. DAPAGLIFLOZIN [Concomitant]
     Active Substance: DAPAGLIFLOZIN
     Dosage: 1 DOSAGE FORM, QD (ONE TO BE TAKEN DAILY AS PER CARDIOLOGY HELD INFECTION LOW BP)
     Route: 065
     Dates: start: 20240530
  18. DERMOL [Concomitant]
     Active Substance: BENZALKONIUM CHLORIDE\CHLORHEXIDINE HYDROCHLORIDE\ISOPROPYL MYRISTATE\PARAFFIN
     Dosage: UNK (500 LOTION, APPLY TO SKIN OR USE AS A SOAP SUBSTITUTE)
     Route: 065
     Dates: start: 20240524
  19. LEVOTHYROXINE SODIUM [Concomitant]
     Active Substance: LEVOTHYROXINE SODIUM
     Dosage: 1 DOSAGE FORM, AM (50 MICROGRAM TABLETS ONE TO BE TAKEN EACH MORNING BEFORE BREAKFAST)
     Route: 065
     Dates: start: 20240729
  20. FUSIDIC ACID [Concomitant]
     Active Substance: FUSIDIC ACID
     Dosage: UNK (CREAM APPLY THINLY ONCE OR TWICE A DAY 30 GRAM-NOT USING)
     Route: 065
     Dates: start: 20240524
  21. DERMOL [Concomitant]
     Active Substance: BENZALKONIUM CHLORIDE\CHLORHEXIDINE HYDROCHLORIDE\ISOPROPYL MYRISTATE\PARAFFIN
     Dosage: UNK, BID (APPLY BD)
     Route: 065
  22. HONEY [Concomitant]
     Active Substance: HONEY
     Dosage: 50 GRAM (MEDIHONEY BARRIER CREAM APPLY TO SKIN AS REQUIRED)
     Route: 065
     Dates: start: 20240819

REACTIONS (1)
  - Haematuria [Fatal]
